FAERS Safety Report 8490433-9 (Version None)
Quarter: 2012Q3

REPORT INFORMATION
  Report Type: 
  Country: None (occurrence: None)
  Receive Date: 20120705
  Receipt Date: 20120625
  Transmission Date: 20120928
  Serious: Yes (Hospitalization)
  Sender: FDA-Public Use
  Company Number: US-ASTRAZENECA-2012SE43101

PATIENT
  Sex: Female

DRUGS (3)
  1. NEXIUM [Suspect]
     Route: 048
  2. PROTONIX [Concomitant]
  3. PEPCID COMPLETE [Concomitant]

REACTIONS (3)
  - DRUG DOSE OMISSION [None]
  - OESOPHAGEAL HAEMORRHAGE [None]
  - ULCER HAEMORRHAGE [None]
